FAERS Safety Report 6299712-7 (Version None)
Quarter: 2009Q3

REPORT INFORMATION
  Report Type: 
  Country: None (occurrence: None)
  Receive Date: 20090806
  Receipt Date: 20090730
  Transmission Date: 20100115
  Serious: Yes (Other)
  Sender: FDA-Public Use
  Company Number: US-BAYER-200928699NA

PATIENT
  Age: 15 Year
  Sex: Female
  Weight: 69 kg

DRUGS (2)
  1. YAZ [Suspect]
     Indication: ACNE
     Route: 048
     Dates: start: 20080901, end: 20090718
  2. ACCUTANE [Concomitant]
     Indication: ACNE

REACTIONS (3)
  - HEADACHE [None]
  - HYPERSOMNIA [None]
  - LOSS OF CONSCIOUSNESS [None]
